FAERS Safety Report 6650030-4 (Version None)
Quarter: 2010Q1

REPORT INFORMATION
  Report Type: 
  Country: None (occurrence: None)
  Receive Date: 20100325
  Receipt Date: 20100313
  Transmission Date: 20100710
  Serious: Yes (Other)
  Sender: FDA-Public Use
  Company Number: JP-ELI_LILLY_AND_COMPANY-JP201003005844

PATIENT
  Age: 59 Year
  Sex: Female

DRUGS (9)
  1. HUMALOG [Suspect]
     Indication: TYPE 2 DIABETES MELLITUS
     Dosage: UNK, UNK
     Route: 058
     Dates: end: 20100312
  2. CRESTOR [Concomitant]
     Route: 048
  3. GLYSENNID [Concomitant]
     Route: 048
  4. LANSOPRAZOLE [Concomitant]
     Route: 065
  5. OPALMON [Concomitant]
     Route: 048
  6. DEPAS [Concomitant]
     Route: 048
  7. BUSCOPAN [Concomitant]
     Route: 048
  8. CLARITIN [Concomitant]
     Route: 048
  9. MAGLAX [Concomitant]
     Route: 048

REACTIONS (6)
  - HYPERGLYCAEMIA [None]
  - HYPOAESTHESIA [None]
  - HYPOAESTHESIA ORAL [None]
  - RIB FRACTURE [None]
  - SOMNOLENCE [None]
  - WHIPLASH INJURY [None]
